FAERS Safety Report 9822347 (Version 3)
Quarter: 2014Q1

REPORT INFORMATION
  Report Type: Spontaneous
  Country: DK (occurrence: DK)
  Receive Date: 20140116
  Receipt Date: 20140211
  Transmission Date: 20141002
  Serious: Yes (Hospitalization, Other)
  Sender: FDA-Public Use
  Company Number: DK-MPIJNJ-2014JNJ000064

PATIENT
  Sex: 0

DRUGS (17)
  1. VELCADE [Suspect]
     Indication: PLASMA CELL MYELOMA
     Route: 065
  2. BENDAMUSTINE [Suspect]
     Route: 065
  3. DEXAMETHASONE [Suspect]
     Route: 065
  4. MERONEM [Concomitant]
     Route: 042
  5. AMBISOME [Concomitant]
     Route: 042
  6. MORPHINE [Concomitant]
     Indication: ADJUVANT THERAPY
     Dosage: 30 MG, BID
  7. INNOHEP [Concomitant]
     Dosage: 4500 DF, UNK
     Route: 058
  8. MULTIVITAMINS [Concomitant]
  9. IMOCLONE [Concomitant]
     Dosage: 7.5 MG, UNK
  10. PANTOPRAZOLE [Concomitant]
     Dosage: 40 MG, UNK
  11. PINEX                              /00020001/ [Concomitant]
     Dosage: 1 G, UNK
  12. UNIKALK SENIOR [Concomitant]
  13. QUININE [Concomitant]
     Dosage: 100 MG, UNK
  14. MOVICOL                            /01625101/ [Concomitant]
  15. REVLIMID [Concomitant]
     Dosage: 25 MG, UNK
  16. ALL OTHER THERAPEUTIC PRODUCTS [Concomitant]
  17. AZITHROMYCIN [Concomitant]

REACTIONS (1)
  - Plasma cell myeloma [Unknown]
